FAERS Safety Report 8071902-2 (Version None)
Quarter: 2012Q1

REPORT INFORMATION
  Report Type: 
  Country: None (occurrence: None)
  Receive Date: 20120126
  Receipt Date: 20111215
  Transmission Date: 20120608
  Serious: Yes (Other)
  Sender: FDA-Public Use
  Company Number: CH-B.I. PHARMACEUTICALS,INC./RIDGEFIELD-2011-AP-00148SI

PATIENT
  Age: 9 Year
  Sex: Male

DRUGS (22)
  1. CLONIDINE [Suspect]
     Route: 042
     Dates: start: 20110222, end: 20110223
  2. ROCEPHIN [Suspect]
     Dosage: 100 RT
     Route: 051
     Dates: start: 20110213, end: 20110218
  3. MORPHINE [Suspect]
     Route: 042
     Dates: start: 20110213, end: 20110222
  4. PROPOFOL [Suspect]
     Route: 042
     Dates: start: 20110213, end: 20110216
  5. NORADRENALIN [Concomitant]
     Dates: start: 20110213, end: 20110216
  6. KETALAR [Concomitant]
     Dates: start: 20110216, end: 20110217
  7. FLUMAZENIL [Concomitant]
     Dosage: 0.15 MG
     Dates: start: 20110221, end: 20110221
  8. NEXIUM [Concomitant]
  9. PROPOFOL [Suspect]
     Route: 042
     Dates: start: 20110222, end: 20110223
  10. FENTANYL [Concomitant]
     Dates: start: 20110213, end: 20110217
  11. LASIX [Concomitant]
     Dosage: 50 MG
     Dates: start: 20110219, end: 20110219
  12. CEPROTIN [Concomitant]
     Dates: start: 20110214, end: 20110216
  13. LEXOTANIL [Suspect]
     Route: 042
     Dates: start: 20110223
  14. MIDAZOLAM HCL [Concomitant]
     Dates: start: 20110213, end: 20110217
  15. VANCOMYCIN [Concomitant]
     Dosage: 800 MG
     Dates: start: 20110218
  16. FLOXAPEN [Suspect]
     Dosage: 3000 MG
     Route: 042
     Dates: start: 20110218
  17. LASIX [Concomitant]
     Dates: start: 20110222, end: 20110222
  18. CLONIDINE [Suspect]
     Route: 042
     Dates: start: 20110218, end: 20110219
  19. CLINDAMYCIN HCL [Concomitant]
     Dosage: 10 RT
     Dates: start: 20110213, end: 20110218
  20. MEROPENEM [Concomitant]
     Dosage: 20 RT
     Dates: start: 20110222
  21. ACYCLOVIR [Concomitant]
     Dosage: 20 RT
     Dates: start: 20110221, end: 20110222
  22. DOBUTAMIN [Concomitant]
     Dates: start: 20110213, end: 20110216

REACTIONS (1)
  - COMA [None]
